FAERS Safety Report 19968737 (Version 1)
Quarter: 2021Q4

REPORT INFORMATION
  Report Type: Report from Study
  Country: US (occurrence: US)
  Receive Date: 20211019
  Receipt Date: 20211019
  Transmission Date: 20220303
  Serious: Yes (Hospitalization)
  Sender: FDA-Public Use
  Company Number: US-MYLANLABS-2021M1073824

PATIENT
  Age: 63 Year
  Sex: Female

DRUGS (4)
  1. DOXORUBICIN [Suspect]
     Active Substance: DOXORUBICIN
     Indication: Adenocarcinoma
     Dosage: 15 MILLIGRAM/SQ. METER
     Route: 065
  2. FLUOROURACIL [Suspect]
     Active Substance: FLUOROURACIL
     Indication: Adenocarcinoma
     Dosage: 400 MILLIGRAM/SQ. METER
     Route: 065
  3. DEXTROSE [Suspect]
     Active Substance: DEXTROSE
     Indication: Adenocarcinoma
     Dosage: DOSE: 1.5 L/M2
     Route: 065
  4. MITOMYCIN [Suspect]
     Active Substance: MITOMYCIN
     Indication: Adenocarcinoma
     Dosage: 15 MILLIGRAM/SQ. METER
     Route: 065

REACTIONS (1)
  - Pancreatitis [Unknown]
